FAERS Safety Report 6100340-4 (Version None)
Quarter: 2009Q1

REPORT INFORMATION
  Report Type: 
  Country: None (occurrence: None)
  Receive Date: 20090303
  Receipt Date: 20090224
  Transmission Date: 20090719
  Serious: Yes (Hospitalization, Other)
  Sender: FDA-Public Use
  Company Number: US-ELI_LILLY_AND_COMPANY-US200902000248

PATIENT
  Sex: Female
  Weight: 56.689 kg

DRUGS (9)
  1. CYMBALTA [Suspect]
     Indication: PAIN
     Dosage: 30 MG, UNK
     Dates: start: 20081230, end: 20090111
  2. TOPROL-XL [Concomitant]
     Dosage: 100 MG, DAILY (1/D)
  3. OXYTROL /00538901/ [Concomitant]
     Dosage: 3.9 MG, DAILY (1/D)
  4. ACTONEL [Concomitant]
     Dosage: 150 MG, MONTHLY (1/M)
  5. LEVOTHYROXINE SODIUM [Concomitant]
     Dosage: 0.15 MG, DAILY (1/D)
  6. LORATADINE [Concomitant]
     Dosage: 10 MG, DAILY (1/D)
  7. FELODIPINE [Concomitant]
     Indication: HYPERTENSION
  8. TYLENOL                                 /SCH/ [Concomitant]
     Indication: PAIN
  9. HEPARIN [Concomitant]

REACTIONS (9)
  - ASPARTATE AMINOTRANSFERASE INCREASED [None]
  - COGNITIVE DISORDER [None]
  - EPILEPSY [None]
  - FACIAL PALSY [None]
  - FATIGUE [None]
  - GRAND MAL CONVULSION [None]
  - LACTIC ACIDOSIS [None]
  - LOSS OF CONSCIOUSNESS [None]
  - SYNCOPE [None]
